FAERS Safety Report 18767476 (Version 3)
Quarter: 2021Q1

REPORT INFORMATION
  Report Type: Report from Study
  Country: None (occurrence: US)
  Receive Date: 20210121
  Receipt Date: 20210215
  Transmission Date: 20210419
  Serious: Yes (Disabling)
  Sender: FDA-Public Use
  Company Number: US-ABBVIE-21K-163-3731177-00

PATIENT
  Age: 77 Year
  Sex: Female
  Weight: 77.18 kg

DRUGS (2)
  1. HUMIRA [Suspect]
     Active Substance: ADALIMUMAB
     Indication: PSORIATIC ARTHROPATHY
     Route: 058
     Dates: start: 202006
  2. PFIZER?BIONTECH COVID?19 VACCINE [Concomitant]
     Active Substance: TOZINAMERAN
     Indication: COVID-19 IMMUNISATION
     Dosage: PFIZER. FIRST DOSE
     Route: 030
     Dates: start: 20210203, end: 20210203

REACTIONS (4)
  - Pain in extremity [Recovering/Resolving]
  - Hypertension [Unknown]
  - Arthralgia [Recovering/Resolving]
  - Disability [Not Recovered/Not Resolved]

NARRATIVE: CASE EVENT DATE: 202007
